FAERS Safety Report 21564654 (Version 2)
Quarter: 2022Q4

REPORT INFORMATION
  Report Type: Report from Study
  Country: US (occurrence: None)
  Receive Date: 20221108
  Receipt Date: 20221116
  Transmission Date: 20230112
  Serious: Yes (Other)
  Sender: FDA-Public Use
  Company Number: US-Merck Healthcare KGaA-9363232

PATIENT
  Sex: Female
  Weight: 86.1 kg

DRUGS (9)
  1. REBIF [Suspect]
     Active Substance: INTERFERON BETA-1A
     Indication: Multiple sclerosis
     Dates: start: 20060403, end: 20061220
  2. REBIF [Suspect]
     Active Substance: INTERFERON BETA-1A
     Dates: start: 20070220, end: 20070910
  3. REBIF [Suspect]
     Active Substance: INTERFERON BETA-1A
     Dates: start: 20080915, end: 20090311
  4. REBIF [Suspect]
     Active Substance: INTERFERON BETA-1A
     Dates: start: 20100115, end: 20111117
  5. REBIF [Suspect]
     Active Substance: INTERFERON BETA-1A
     Dates: start: 20120317, end: 20120512
  6. REBIF [Suspect]
     Active Substance: INTERFERON BETA-1A
     Dates: start: 20151026, end: 20161126
  7. REBIF [Suspect]
     Active Substance: INTERFERON BETA-1A
     Dates: start: 20161127, end: 20170728
  8. REBIF [Suspect]
     Active Substance: INTERFERON BETA-1A
     Dates: start: 20171023, end: 20191227
  9. REBIF [Suspect]
     Active Substance: INTERFERON BETA-1A
     Dosage: REBIF: REBIF PREFILLED SYRINGE
     Route: 058
     Dates: start: 20200424, end: 20220127

REACTIONS (1)
  - Malignant melanoma [Recovered/Resolved]
